FAERS Safety Report 7245221-8 (Version None)
Quarter: 2011Q1

REPORT INFORMATION
  Report Type: 
  Country: None (occurrence: None)
  Receive Date: 20110126
  Receipt Date: 20110120
  Transmission Date: 20110831
  Serious: Yes (Death)
  Sender: FDA-Public Use
  Company Number: PL-CELGENEUS-129-21880-11010557

PATIENT
  Sex: Male

DRUGS (6)
  1. OPACORDEN [Concomitant]
     Route: 065
  2. DIGOXIN [Concomitant]
     Route: 065
  3. MILURIT [Concomitant]
     Route: 065
  4. DEXAMETHASONE [Concomitant]
     Route: 065
     Dates: start: 20101221, end: 20101221
  5. REVLIMID [Suspect]
     Indication: MULTIPLE MYELOMA
     Route: 048
     Dates: start: 20101221, end: 20101226
  6. METOCARD [Concomitant]
     Route: 065

REACTIONS (2)
  - PNEUMONIA [None]
  - RESPIRATORY FAILURE [None]
